FAERS Safety Report 5163908-8 (Version None)
Quarter: 2006Q4

REPORT INFORMATION
  Report Type: 
  Country: None (occurrence: None)
  Receive Date: 20061204
  Receipt Date: 20061121
  Transmission Date: 20070319
  Serious: Yes (Other)
  Sender: FDA-Public Use
  Company Number: JP-ELI_LILLY_AND_COMPANY-JP200611004561

PATIENT
  Age: 57 Year
  Sex: Female

DRUGS (4)
  1. RALOXIFENE HYDROCHLORIDE [Suspect]
     Indication: OSTEOPOROSIS POSTMENOPAUSAL
     Dosage: 60 MG, DAILY (1/D)
     Route: 048
     Dates: start: 20041221, end: 20050801
  2. ASPARA-CA [Concomitant]
     Indication: OSTEOPOROSIS POSTMENOPAUSAL
     Dosage: 1200 MG, DAILY (1/D)
     Route: 048
     Dates: start: 20041221, end: 20050624
  3. ASPARA-CA [Concomitant]
     Dosage: 600 MG, DAILY (1/D)
     Route: 048
     Dates: start: 20050625
  4. LAMISIL /00992602/ [Concomitant]
     Indication: NAIL TINEA
     Dosage: 1 D/F, DAILY (1/D)
     Route: 048
     Dates: start: 20050625

REACTIONS (1)
  - TRAUMATIC FRACTURE [None]
